FAERS Safety Report 19015761 (Version 1)
Quarter: 2021Q1

REPORT INFORMATION
  Report Type: Spontaneous
  Country: US (occurrence: US)
  Receive Date: 20210317
  Receipt Date: 20210317
  Transmission Date: 20210420
  Serious: Yes (Other)
  Sender: FDA-Public Use
  Company Number: US-ROCHE-2790574

PATIENT
  Sex: Female

DRUGS (2)
  1. ZELBORAF [Suspect]
     Active Substance: VEMURAFENIB
     Indication: BRAIN NEOPLASM
     Route: 048
     Dates: start: 20210213
  2. COTELLIC [Suspect]
     Active Substance: COBIMETINIB
     Indication: BRAIN NEOPLASM
     Route: 048
     Dates: start: 20210213

REACTIONS (2)
  - Off label use [Unknown]
  - Panniculitis [Unknown]
